FAERS Safety Report 16853463 (Version 1)
Quarter: 2019Q3

REPORT INFORMATION
  Report Type: Report from Study
  Country: None (occurrence: US)
  Receive Date: 20190925
  Receipt Date: 20190925
  Transmission Date: 20191005
  Serious: Yes (Other)
  Sender: FDA-Public Use
  Company Number: US-ABBVIE-19K-163-2935443-00

PATIENT
  Sex: Male

DRUGS (1)
  1. ANDROGEL [Suspect]
     Active Substance: TESTOSTERONE
     Indication: PRODUCT USED FOR UNKNOWN INDICATION
     Route: 061

REACTIONS (9)
  - Iridotomy [Unknown]
  - Hypogonadism [Unknown]
  - Sleep apnoea syndrome [Unknown]
  - Haemorrhoid operation [Unknown]
  - Type 2 diabetes mellitus [Unknown]
  - Hyperlipidaemia [Unknown]
  - Tonsillectomy [Unknown]
  - Osteopenia [Unknown]
  - Adenoidectomy [Unknown]

NARRATIVE: CASE EVENT DATE: 2011
